FAERS Safety Report 10095997 (Version 1)
Quarter: 2014Q2

REPORT INFORMATION
  Report Type: Spontaneous
  Country: US (occurrence: US)
  Receive Date: 20140422
  Receipt Date: 20140422
  Transmission Date: 20141212
  Serious: Yes (Other)
  Sender: FDA-Public Use
  Company Number: US-GLAXOSMITHKLINE-A1069628A

PATIENT
  Age: 74 Year
  Sex: Female

DRUGS (2)
  1. IMITREX [Suspect]
     Indication: PRODUCT USED FOR UNKNOWN INDICATION
     Dosage: 50MG UNKNOWN
     Route: 065
  2. OXYGEN [Concomitant]

REACTIONS (5)
  - Angina pectoris [Unknown]
  - Migraine [Unknown]
  - Pain [Unknown]
  - Malaise [Unknown]
  - Dysphonia [Unknown]
